FAERS Safety Report 24282160 (Version 1)
Quarter: 2024Q3

REPORT INFORMATION
  Report Type: Spontaneous
  Country: US (occurrence: None)
  Receive Date: 20240903
  Receipt Date: 20240903
  Transmission Date: 20241017
  Serious: Yes (Death)
  Sender: Public
  Company Number: None

PATIENT
  Age: 65 Year
  Sex: Female
  Weight: 42.9 kg

DRUGS (1)
  1. TARLATAMAB-DLLE [Suspect]
     Active Substance: TARLATAMAB-DLLE
     Dosage: OTHER FREQUENCY : ONCE;?
     Route: 040
     Dates: start: 20240828

REACTIONS (12)
  - Immune effector cell-associated neurotoxicity syndrome [None]
  - Hypoglycaemia [None]
  - Mental status changes [None]
  - Acute respiratory failure [None]
  - Hypervolaemia [None]
  - Haemoglobin decreased [None]
  - Pulmonary oedema [None]
  - Thyroid disorder [None]
  - Depressed mood [None]
  - Pain [None]
  - Restlessness [None]
  - Drug ineffective [None]

NARRATIVE: CASE EVENT DATE: 20240829
